FAERS Safety Report 6032040-3 (Version None)
Quarter: 2009Q1

REPORT INFORMATION
  Report Type: 
  Country: None (occurrence: None)
  Receive Date: 20090107
  Receipt Date: 20081226
  Transmission Date: 20090719
  Serious: Yes (Hospitalization)
  Sender: FDA-Public Use
  Company Number: 2008SP025548

PATIENT
  Age: 63 Year
  Sex: Female

DRUGS (6)
  1. PEGINTERFERON ALFA-2B             (PEGINTERFERON ALFA-2B) [Suspect]
     Indication: HEPATITIS C
     Dosage: 80 MCG; QW; SC
     Route: 058
     Dates: start: 20080704
  2. RIBAVIRIN [Suspect]
     Indication: HEPATITIS C
     Dosage: 800 MG; QD; PO, 600 MG; QD; PO
     Route: 048
     Dates: start: 20080704, end: 20080720
  3. RIBAVIRIN [Suspect]
     Indication: HEPATITIS C
     Dosage: 800 MG; QD; PO, 600 MG; QD; PO
     Route: 048
     Dates: start: 20080721
  4. INVESTIGATIONAL DRUG (INVESTIGATIONAL DRUG) [Suspect]
     Indication: HEPATITIS C
     Dosage: ; PO, 100 MG; QD;
     Route: 048
     Dates: start: 20080704, end: 20081001
  5. INVESTIGATIONAL DRUG (INVESTIGATIONAL DRUG) [Suspect]
     Indication: HEPATITIS C
     Dosage: ; PO, 100 MG; QD;
     Route: 048
     Dates: start: 20081002
  6. ELTROMBOPAG        (ELTROMBOPAG) [Suspect]
     Indication: THROMBOCYTOPENIA
     Dosage: 25 MG; QD; PO
     Route: 048
     Dates: start: 20080619, end: 20080703

REACTIONS (4)
  - ASCITES [None]
  - BLOOD ALBUMIN DECREASED [None]
  - DYSPEPSIA [None]
  - PROTEIN TOTAL DECREASED [None]
